FAERS Safety Report 14377548 (Version 1)
Quarter: 2018Q1

REPORT INFORMATION
  Report Type: Spontaneous
  Country: US (occurrence: US)
  Receive Date: 20180111
  Receipt Date: 20180111
  Transmission Date: 20180509
  Serious: No
  Sender: FDA-Public Use
  Company Number: US-PFIZER INC-2018012262

PATIENT
  Age: 59 Year
  Sex: Female

DRUGS (1)
  1. SOLU-MEDROL [Suspect]
     Active Substance: METHYLPREDNISOLONE SODIUM SUCCINATE
     Dosage: UNK

REACTIONS (8)
  - Blood glucose abnormal [Unknown]
  - Blood pressure abnormal [Unknown]
  - Condition aggravated [Unknown]
  - Insomnia [Unknown]
  - Anxiety [Unknown]
  - Gastrointestinal disorder [Unknown]
  - Confusional state [Unknown]
  - Gastrooesophageal reflux disease [Unknown]
